FAERS Safety Report 6708728-5 (Version None)
Quarter: 2010Q2

REPORT INFORMATION
  Report Type: 
  Country: None (occurrence: None)
  Receive Date: 20100504
  Receipt Date: 20100420
  Transmission Date: 20101027
  Serious: Yes (Other)
  Sender: FDA-Public Use
  Company Number: IT-RANBAXY-2010RR-32919

PATIENT
  Sex: Male

DRUGS (7)
  1. CETIRIZINE HCL [Suspect]
     Indication: URTICARIA
  2. HYDROXYZINE [Suspect]
     Indication: URTICARIA
  3. DESLORATADINE [Suspect]
     Indication: URTICARIA
  4. FEXOFENADINE [Suspect]
     Indication: URTICARIA
  5. EBASTINE [Suspect]
     Indication: URTICARIA
  6. RUPATADINE [Suspect]
     Indication: URTICARIA
  7. MONTELUKAST SODIUM [Suspect]
     Indication: URTICARIA
     Dosage: 10 MG, UNK

REACTIONS (1)
  - URTICARIA [None]
